FAERS Safety Report 6145948-5 (Version None)
Quarter: 2009Q2

REPORT INFORMATION
  Report Type: 
  Country: None (occurrence: None)
  Receive Date: 20090407
  Receipt Date: 20090403
  Transmission Date: 20091009
  Serious: Yes (Death, Other)
  Sender: FDA-Public Use
  Company Number: GB-ASTRAZENECA-2009GB00817

PATIENT
  Age: 79 Year
  Sex: Male
  Weight: 68.4 kg

DRUGS (6)
  1. OMEPRAZOLE [Suspect]
     Route: 048
     Dates: start: 20081114
  2. ACETYLCYSTEINE [Suspect]
     Indication: IDIOPATHIC PULMONARY FIBROSIS
     Route: 048
     Dates: start: 20081114, end: 20081226
  3. ALENDRONATE SODIUM [Suspect]
     Route: 048
     Dates: start: 20081114
  4. AZATHIOPRINE [Suspect]
     Indication: IDIOPATHIC PULMONARY FIBROSIS
     Route: 048
     Dates: start: 20081114, end: 20081226
  5. PREDNISOLONE [Suspect]
     Route: 065
  6. WARFARIN SODIUM [Concomitant]
     Indication: MITRAL VALVE REPLACEMENT
     Dates: start: 20050101

REACTIONS (4)
  - ERYTHEMA [None]
  - NEUTROPENIA [None]
  - SEPSIS [None]
  - TOXIC EPIDERMAL NECROLYSIS [None]
